FAERS Safety Report 5870696-6 (Version None)
Quarter: 2008Q3

REPORT INFORMATION
  Report Type: 
  Country: None (occurrence: None)
  Receive Date: 20080904
  Receipt Date: 20080904
  Transmission Date: 20090109
  Serious: Yes (Hospitalization)
  Sender: FDA-Public Use
  Company Number: PHEH1996US08117

PATIENT
  Sex: Female

DRUGS (5)
  1. SANDIMMUNE [Suspect]
     Route: 048
     Dates: start: 19941004
  2. PREDNISONE [Concomitant]
  3. CATAPRES [Concomitant]
  4. DARVOCET [Concomitant]
  5. PROCARDIA [Concomitant]

REACTIONS (3)
  - BLOOD CREATININE INCREASED [None]
  - PROCEDURAL PAIN [None]
  - TRANSPLANT REJECTION [None]
